FAERS Safety Report 21797923 (Version 1)
Quarter: 2022Q4

REPORT INFORMATION
  Report Type: Spontaneous
  Country: US (occurrence: US)
  Receive Date: 20221230
  Receipt Date: 20221230
  Transmission Date: 20230113
  Serious: No
  Sender: FDA-Public Use
  Company Number: US-NEBO-PC009673

PATIENT
  Age: 91 Year
  Sex: Female

DRUGS (1)
  1. MONOFERRIC [Suspect]
     Active Substance: FERRIC DERISOMALTOSE
     Indication: Product used for unknown indication
     Route: 050
     Dates: start: 20221207, end: 20221207

REACTIONS (6)
  - Malaise [Unknown]
  - Dizziness [Unknown]
  - Back pain [Unknown]
  - Erythema [Unknown]
  - Chest pain [Unknown]
  - Chills [Unknown]

NARRATIVE: CASE EVENT DATE: 20221207
